FAERS Safety Report 8517173-1 (Version None)
Quarter: 2012Q3

REPORT INFORMATION
  Report Type: 
  Country: None (occurrence: None)
  Receive Date: 20120718
  Receipt Date: 20120711
  Transmission Date: 20120928
  Serious: Yes (Hospitalization)
  Sender: FDA-Public Use
  Company Number: US-BAYER-2012-003028

PATIENT
  Age: 34 Year
  Sex: Female
  Weight: 104.31 kg

DRUGS (28)
  1. YASMIN [Suspect]
     Indication: CONTRACEPTION
     Dosage: UNK
     Dates: start: 20020807, end: 20080828
  2. OXYCODONE HCL [Concomitant]
     Indication: PROCEDURAL PAIN
     Dosage: 1-2 TABLETS, Q4HR PRN
     Route: 048
     Dates: start: 20081118, end: 20081215
  3. ZOFRAN [Concomitant]
     Dosage: 4 MG, UNK
     Route: 042
     Dates: start: 20081118
  4. PERCOCET [Concomitant]
     Dosage: 2 TABLETS
     Route: 048
     Dates: start: 20081118
  5. CEPHALEXIN [Concomitant]
     Dosage: 500 MG, UNK
     Route: 048
     Dates: start: 20081124, end: 20081211
  6. ALEVE [Concomitant]
     Indication: PAIN
     Dosage: UNK
     Route: 048
     Dates: start: 20081215
  7. PROMETHAZINE [Concomitant]
     Indication: NAUSEA
     Dosage: 1 TABLET, EVERY 6 HOURS PRN
     Route: 048
     Dates: start: 20081118
  8. DROSPIRENONE AND ETHINYL ESTRADIOL [Suspect]
     Indication: CONTRACEPTION
     Dosage: UNK
     Dates: start: 20090529, end: 20090804
  9. VICODIN [Concomitant]
     Indication: PROCEDURAL PAIN
     Dosage: 1-2 TABLETS, Q4HR PRN
     Route: 048
     Dates: start: 20081118, end: 20081215
  10. PHENTERMINE [Concomitant]
     Indication: WEIGHT DECREASED
     Dosage: UNK
     Route: 048
     Dates: start: 20081215
  11. IBUPROFEN [Concomitant]
     Dosage: 800 MG, UNK
     Route: 048
     Dates: start: 20080916
  12. MARCAINE [Concomitant]
     Dosage: 8 ML OF 0.5% INJECTION
     Dates: start: 20081002
  13. KETAMINE HCL [Concomitant]
     Dosage: 40 MG, UNK
     Route: 042
     Dates: start: 20081118
  14. YAZ [Suspect]
     Indication: CONTRACEPTION
     Dosage: UNK
     Dates: start: 20080809, end: 20090101
  15. YAZ [Suspect]
     Dosage: UNK
     Dates: end: 20090331
  16. DEPO-MEDROL [Concomitant]
     Dosage: 3 ML, OF 40 MG
     Dates: start: 20081002
  17. LIDOCAINE [Concomitant]
     Dosage: 30 ML, UNK
     Dates: start: 20081118
  18. VITAMIN B-12 [Concomitant]
     Dosage: UNK, DAILY
     Route: 048
     Dates: start: 20081118
  19. LIDOCAINE [Concomitant]
     Dosage: 50 MG, UNK
     Route: 042
     Dates: start: 20081118
  20. PROPOFOL [Concomitant]
     Dosage: 200 MG, UNK
     Route: 042
     Dates: start: 20081118
  21. SUDAFED 12 HOUR [Concomitant]
     Indication: NASOPHARYNGITIS
     Dosage: UNK
     Route: 048
     Dates: start: 20081215
  22. KETOROLAC TROMETHAMINE [Concomitant]
     Dosage: 30 MG, UNK
     Route: 042
     Dates: start: 20081118
  23. CHROMIUM PICOLINATE [Concomitant]
     Dosage: UNK, DAILY
     Route: 048
     Dates: start: 20081118
  24. FLUCONAZOLE [Concomitant]
     Dosage: 150 MG, UNK
     Route: 048
     Dates: start: 20080923
  25. FENTANYL [Concomitant]
     Dosage: 2 ML, UNK
     Route: 042
     Dates: start: 20081118
  26. MIDAZOLAM [Concomitant]
     Dosage: 2 MG, UNK
     Route: 042
     Dates: start: 20081118
  27. MARCAINE HYDROCHLORIDE W/ EPINEPHRINE [Concomitant]
     Dosage: 30 ML,INJECTION
     Dates: start: 20081118
  28. M.V.I. [Concomitant]
     Dosage: UNK, DAILY
     Route: 048
     Dates: start: 20081118

REACTIONS (8)
  - GENERAL PHYSICAL HEALTH DETERIORATION [None]
  - INJURY [None]
  - FEAR OF DEATH [None]
  - EMOTIONAL DISTRESS [None]
  - DEEP VEIN THROMBOSIS [None]
  - ANXIETY [None]
  - PAIN IN EXTREMITY [None]
  - LIMB DISCOMFORT [None]
